FAERS Safety Report 7994202-5 (Version None)
Quarter: 2011Q4

REPORT INFORMATION
  Report Type: 
  Country: None (occurrence: None)
  Receive Date: 20111220
  Receipt Date: 20110320
  Transmission Date: 20120403
  Serious: No
  Sender: FDA-Public Use
  Company Number: US-GLAXOSMITHKLINE-A0919860A

PATIENT
  Sex: Female

DRUGS (1)
  1. PROPAFENONE HCL [Suspect]
     Indication: ATRIAL FIBRILLATION
     Dosage: 325MG UNKNOWN

REACTIONS (7)
  - CHEST PAIN [None]
  - RASH [None]
  - BURNING SENSATION [None]
  - HYPERSENSITIVITY [None]
  - MALAISE [None]
  - ECZEMA [None]
  - DRY SKIN [None]
